FAERS Safety Report 10267513 (Version 1)
Quarter: 2014Q2

REPORT INFORMATION
  Report Type: Spontaneous
  Country: US (occurrence: US)
  Receive Date: 20140630
  Receipt Date: 20140630
  Transmission Date: 20141212
  Serious: No
  Sender: FDA-Public Use
  Company Number: US-PFIZER INC-2014174583

PATIENT
  Sex: Male

DRUGS (4)
  1. LYRICA [Suspect]
     Indication: PAIN
     Dosage: 75 MG, 2X/DAY
     Dates: start: 201405
  2. LYRICA [Suspect]
     Dosage: 150 MG, 2X/DAY
     Dates: start: 2014
  3. LYRICA [Suspect]
     Dosage: 75 MG, 2X/DAY
     Dates: start: 2014
  4. LYRICA [Suspect]
     Dosage: 150 MG, 2X/DAY
     Dates: start: 2014

REACTIONS (1)
  - Drug ineffective [Unknown]
